FAERS Safety Report 4655126-4 (Version None)
Quarter: 2005Q2

REPORT INFORMATION
  Report Type: 
  Country: None (occurrence: None)
  Receive Date: 20050506
  Receipt Date: 20050422
  Transmission Date: 20051028
  Serious: Yes (Other)
  Sender: FDA-Public Use
  Company Number: GB-JNJFOC-20050401435

PATIENT
  Sex: Female

DRUGS (2)
  1. ESTRADIOL [Suspect]
     Route: 062
  2. MICRONOR [Suspect]
     Route: 049

REACTIONS (3)
  - DIZZINESS [None]
  - SYNCOPE [None]
  - VERTIGO [None]
